FAERS Safety Report 13048299 (Version 2)
Quarter: 2017Q1

REPORT INFORMATION
  Report Type: Spontaneous
  Country: US (occurrence: US)
  Receive Date: 20161220
  Receipt Date: 20170119
  Transmission Date: 20170428
  Serious: Yes (Hospitalization)
  Sender: FDA-Public Use
  Company Number: US-GE HEALTHCARE MEDICAL DIAGNOSTICS-OPTN-PR-1612S-0013

PATIENT
  Age: 74 Year
  Sex: Male

DRUGS (6)
  1. OPTISON [Suspect]
     Active Substance: ALBUMIN HUMAN
     Indication: DIAGNOSTIC PROCEDURE
  2. CARBOPLATIN. [Concomitant]
     Active Substance: CARBOPLATIN
     Indication: LUNG NEOPLASM MALIGNANT
  3. DUONEBS [Concomitant]
  4. ADVAIR DISKUS [Concomitant]
     Active Substance: FLUTICASONE PROPIONATE\SALMETEROL XINAFOATE
  5. PEMETREXED [Concomitant]
     Active Substance: PEMETREXED
     Indication: LUNG NEOPLASM MALIGNANT
  6. OPTISON [Suspect]
     Active Substance: ALBUMIN HUMAN
     Indication: INTRACARDIAC THROMBUS
     Route: 042
     Dates: start: 20161213, end: 20161213

REACTIONS (3)
  - Anaphylactoid reaction [Recovered/Resolved]
  - Cardiac failure [Recovering/Resolving]
  - Ventricular tachycardia [Recovered/Resolved]

NARRATIVE: CASE EVENT DATE: 20161213
